FAERS Safety Report 13424066 (Version 1)
Quarter: 2017Q2

REPORT INFORMATION
  Report Type: Other
  Country: US (occurrence: US)
  Receive Date: 20170410
  Receipt Date: 20170410
  Transmission Date: 20170830
  Serious: No
  Sender: FDA-Public Use
  Company Number: US-MALLINCKRODT-T201606205

PATIENT

DRUGS (1)
  1. METHADOSE DISPERSIBLE [Suspect]
     Active Substance: METHADONE HYDROCHLORIDE
     Indication: PRODUCT USED FOR UNKNOWN INDICATION
     Dosage: 1 TABLET
     Route: 065

REACTIONS (4)
  - Drug dispensing error [Unknown]
  - Wrong technique in product usage process [Unknown]
  - Product contamination microbial [Unknown]
  - Feeling abnormal [Unknown]
